FAERS Safety Report 6869167-X (Version None)
Quarter: 2010Q3

REPORT INFORMATION
  Report Type: 
  Country: None (occurrence: None)
  Receive Date: 20100722
  Receipt Date: 20080710
  Transmission Date: 20110219
  Serious: No
  Sender: FDA-Public Use
  Company Number: US-PFIZER INC-2008058190

PATIENT
  Sex: Female
  Weight: 95.5 kg

DRUGS (4)
  1. CHANTIX [Suspect]
     Indication: SMOKING CESSATION THERAPY
     Dates: start: 20080628, end: 20080709
  2. FLONASE [Concomitant]
  3. ALBUTEROL [Concomitant]
  4. ALEVE (CAPLET) [Concomitant]

REACTIONS (8)
  - ANXIETY [None]
  - CONSTIPATION [None]
  - DEPRESSION [None]
  - DRUG DOSE OMISSION [None]
  - FEELING ABNORMAL [None]
  - IMPAIRED DRIVING ABILITY [None]
  - MUSCLE SPASMS [None]
  - NAUSEA [None]
